FAERS Safety Report 20941854 (Version 1)
Quarter: 2022Q2

REPORT INFORMATION
  Report Type: Spontaneous
  Country: US (occurrence: US)
  Receive Date: 20220610
  Receipt Date: 20220610
  Transmission Date: 20220721
  Serious: No
  Sender: FDA-Public Use
  Company Number: US-TEVA-2022-US-2038060

PATIENT
  Sex: Male

DRUGS (1)
  1. PROPYLTHIOURACIL [Suspect]
     Active Substance: PROPYLTHIOURACIL
     Dosage: 150 MILLICURIES DAILY;

REACTIONS (4)
  - Insomnia [Unknown]
  - Product physical issue [Unknown]
  - Product taste abnormal [Unknown]
  - Adverse event [Unknown]
